FAERS Safety Report 7930566-6 (Version None)
Quarter: 2011Q4

REPORT INFORMATION
  Report Type: 
  Country: None (occurrence: None)
  Receive Date: 20111117
  Receipt Date: 20111117
  Transmission Date: 20120403
  Serious: Yes (Hospitalization, Other)
  Sender: FDA-Public Use
  Company Number: None

PATIENT
  Age: 47 Year
  Sex: Female
  Weight: 86.1834 kg

DRUGS (2)
  1. PERCOCET [Suspect]
     Indication: VIRAL INFECTION
     Dosage: 650MG 2 X DAILY
     Dates: start: 20110217, end: 20110221
  2. PERCOCET [Suspect]
     Indication: PAIN
     Dosage: 650MG 2 X DAILY
     Dates: start: 20110217, end: 20110221

REACTIONS (1)
  - PRURITUS GENERALISED [None]
